FAERS Safety Report 4993884-X (Version None)
Quarter: 2006Q2

REPORT INFORMATION
  Report Type: 
  Country: None (occurrence: None)
  Receive Date: 20060505
  Receipt Date: 20051123
  Transmission Date: 20061013
  Serious: Yes (Hospitalization, Disabling)
  Sender: FDA-Public Use
  Company Number: US-MERCK-0511USA04084

PATIENT
  Age: 54 Year
  Sex: Female
  Weight: 114 kg

DRUGS (6)
  1. VIOXX [Suspect]
     Indication: OSTEOARTHRITIS
     Route: 048
     Dates: start: 20020903, end: 20041001
  2. AMARYL [Concomitant]
     Indication: DIABETES MELLITUS
     Route: 048
     Dates: start: 19940601
  3. SYNTHROID [Concomitant]
     Indication: HYPOTHYROIDISM
     Route: 048
     Dates: start: 19980101
  4. MONOPRIL [Concomitant]
     Route: 048
     Dates: end: 20030606
  5. METROGEL [Concomitant]
     Indication: RASH
     Route: 065
  6. COMBIVENT [Concomitant]
     Route: 055

REACTIONS (9)
  - CARDIAC HYPERTROPHY [None]
  - DILATATION ATRIAL [None]
  - GASTRIC DISORDER [None]
  - MITRAL VALVE INCOMPETENCE [None]
  - MUSCULOSKELETAL DISORDER [None]
  - NASAL ULCER [None]
  - REVERSIBLE ISCHAEMIC NEUROLOGICAL DEFICIT [None]
  - TRANSIENT ISCHAEMIC ATTACK [None]
  - TRICUSPID VALVE INCOMPETENCE [None]
